FAERS Safety Report 14292645 (Version 1)
Quarter: 2017Q4

REPORT INFORMATION
  Report Type: Spontaneous
  Country: US (occurrence: US)
  Receive Date: 20171215
  Receipt Date: 20171215
  Transmission Date: 20180321
  Serious: Yes (Other)
  Sender: FDA-Public Use
  Company Number: US-FRESENIUS KABI-FK201710937

PATIENT
  Age: 14 Year
  Sex: Male
  Weight: 36 kg

DRUGS (5)
  1. BAL8557 [Suspect]
     Active Substance: ISAVUCONAZOLE
     Route: 042
     Dates: start: 20171029
  2. ETOPOSIDE. [Suspect]
     Active Substance: ETOPOSIDE
     Indication: EWING^S SARCOMA RECURRENT
     Route: 042
     Dates: start: 20171021, end: 20171025
  3. CARBOPLATIN (MANUFACTURER UNKNOWN) [Suspect]
     Active Substance: CARBOPLATIN
     Indication: EWING^S SARCOMA RECURRENT
     Route: 042
     Dates: start: 20171021, end: 20171022
  4. IFOSFAMIDE. [Suspect]
     Active Substance: IFOSFAMIDE
     Indication: EWING^S SARCOMA RECURRENT
     Route: 042
     Dates: start: 20171021, end: 20171025
  5. BAL8557 [Suspect]
     Active Substance: ISAVUCONAZOLE
     Indication: ANTIFUNGAL PROPHYLAXIS
     Route: 042
     Dates: start: 20171026, end: 20171028

REACTIONS (1)
  - Febrile neutropenia [Recovered/Resolved]

NARRATIVE: CASE EVENT DATE: 20171103
